FAERS Safety Report 9647422 (Version 1)
Quarter: 2013Q4

REPORT INFORMATION
  Report Type: Report from Study
  Country: GB (occurrence: GB)
  Receive Date: 20131028
  Receipt Date: 20131028
  Transmission Date: 20140711
  Serious: Yes (Death)
  Sender: FDA-Public Use
  Company Number: GB-AMGEN-GBRCT2013075421

PATIENT
  Age: 86 Year
  Sex: Male
  Weight: 54 kg

DRUGS (1)
  1. ETANERCEPT [Suspect]
     Indication: RHEUMATOID ARTHRITIS
     Dosage: 25 MG, 2 TIMES/WK
     Route: 065
     Dates: start: 20120101

REACTIONS (4)
  - Bronchiectasis [Fatal]
  - Chronic obstructive pulmonary disease [Fatal]
  - Rheumatoid arthritis [Fatal]
  - Pneumonia [Fatal]
